FAERS Safety Report 7329175-1 (Version None)
Quarter: 2011Q1

REPORT INFORMATION
  Report Type: 
  Country: None (occurrence: None)
  Receive Date: 20110303
  Receipt Date: 20101007
  Transmission Date: 20110831
  Serious: Yes (Hospitalization)
  Sender: FDA-Public Use
  Company Number: A0886332A

PATIENT
  Sex: Male

DRUGS (1)
  1. AVANDIA [Suspect]
     Indication: DIABETES MELLITUS
     Dosage: 8MG PER DAY
     Route: 048
     Dates: start: 20000101, end: 20060101

REACTIONS (4)
  - MYOCARDIAL INFARCTION [None]
  - STENT PLACEMENT [None]
  - DIZZINESS [None]
  - ARTERIAL DISORDER [None]
